FAERS Safety Report 24662075 (Version 4)
Quarter: 2025Q1

REPORT INFORMATION
  Report Type: Spontaneous
  Country: US (occurrence: US)
  Receive Date: 20241125
  Receipt Date: 20250318
  Transmission Date: 20250408
  Serious: No
  Sender: JOHNSON AND JOHNSON
  Company Number: US-JNJFOC-20241157221

PATIENT
  Age: 68 Year
  Sex: Female
  Weight: 52.16 kg

DRUGS (6)
  1. DARZALEX FASPRO [Suspect]
     Active Substance: DARATUMUMAB\HYALURONIDASE-FIHJ
     Indication: Product used for unknown indication
  2. DARZALEX FASPRO [Suspect]
     Active Substance: DARATUMUMAB\HYALURONIDASE-FIHJ
     Indication: Plasma cell myeloma
     Route: 058
     Dates: start: 20241014
  3. DARZALEX FASPRO [Suspect]
     Active Substance: DARATUMUMAB\HYALURONIDASE-FIHJ
     Indication: Product used for unknown indication
     Route: 065
  4. DARZALEX FASPRO [Suspect]
     Active Substance: DARATUMUMAB\HYALURONIDASE-FIHJ
     Route: 065
  5. ALGAECAL PLUS [Concomitant]
  6. MAGNESIUM GLYCINATE [Concomitant]
     Active Substance: MAGNESIUM GLYCINATE

REACTIONS (9)
  - Overdose [Unknown]
  - Unevaluable event [Unknown]
  - Photopsia [Unknown]
  - Visual perseveration [Unknown]
  - Therapeutic response delayed [Unknown]
  - Off label use [Unknown]
  - Asthenia [Recovering/Resolving]
  - Gingival bleeding [Recovering/Resolving]
  - Hypoaesthesia [Recovering/Resolving]
